FAERS Safety Report 15098845 (Version 3)
Quarter: 2018Q3

REPORT INFORMATION
  Report Type: Spontaneous
  Country: DE (occurrence: DE)
  Receive Date: 20180702
  Receipt Date: 20180822
  Transmission Date: 20181010
  Serious: Yes (Hospitalization, Other)
  Sender: FDA-Public Use
  Company Number: DE-PFIZER INC-2018267087

PATIENT
  Age: 88 Year
  Sex: Male
  Weight: 90 kg

DRUGS (10)
  1. METFORMIN [Concomitant]
     Active Substance: METFORMIN HYDROCHLORIDE
     Dosage: UNK
  2. ALLOPURINOL. [Concomitant]
     Active Substance: ALLOPURINOL
     Dosage: UNK
  3. ASPIRIN. [Concomitant]
     Active Substance: ASPIRIN
     Dosage: UNK
  4. EISEN [Concomitant]
     Dosage: UNK
  5. INSULIN HUMAN [Concomitant]
     Active Substance: INSULIN HUMAN
     Dosage: UNK
  6. HYDROCHLOROTHIAZID [Suspect]
     Active Substance: HYDROCHLOROTHIAZIDE
     Dosage: 25 MG, 1X/DAY (1?0?0?0)
     Route: 065
  7. LANTUS [Concomitant]
     Active Substance: INSULIN GLARGINE
     Dosage: UNK
  8. LOCOL (FLUVASTATIN SODIUM) [Concomitant]
     Active Substance: FLUVASTATIN SODIUM
     Dosage: UNK
  9. RAMIPRIL. [Suspect]
     Active Substance: RAMIPRIL
     Dosage: 10 MG, 1X/DAY (1?0?0?0)
     Route: 065
  10. CATAPRESAN [Suspect]
     Active Substance: CLONIDINE
     Dosage: 450 MG, 1X/DAY
     Route: 065

REACTIONS (3)
  - Circulatory collapse [Unknown]
  - Asthenia [Unknown]
  - Drug prescribing error [Unknown]
